FAERS Safety Report 23679766 (Version 2)
Quarter: 2024Q2

REPORT INFORMATION
  Report Type: Spontaneous
  Country: DE (occurrence: None)
  Receive Date: 20240327
  Receipt Date: 20240514
  Transmission Date: 20240716
  Serious: Yes (Other)
  Sender: FDA-Public Use
  Company Number: 2024A070867

PATIENT
  Age: 63 Year
  Sex: Female

DRUGS (1)
  1. DURVALUMAB [Suspect]
     Active Substance: DURVALUMAB
     Indication: Ovarian cancer
     Route: 048

REACTIONS (4)
  - Ketoacidosis [Unknown]
  - Immune-mediated adverse reaction [Unknown]
  - Hypothyroidism [Unknown]
  - Hepatitis [Unknown]
